FAERS Safety Report 22659814 (Version 7)
Quarter: 2023Q4

REPORT INFORMATION
  Report Type: Spontaneous
  Country: US (occurrence: US)
  Receive Date: 20230630
  Receipt Date: 20231228
  Transmission Date: 20240110
  Serious: No
  Sender: FDA-Public Use
  Company Number: US-PFIZER INC-PV202300112944

PATIENT
  Age: 63 Year
  Sex: Female
  Weight: 66.213 kg

DRUGS (7)
  1. BRAFTOVI [Suspect]
     Active Substance: ENCORAFENIB
     Indication: Metastatic malignant melanoma
     Dosage: TAKE 6 CAPSULES (450 MG) EVERY DAY
     Route: 048
     Dates: start: 20210706
  2. BRAFTOVI [Suspect]
     Active Substance: ENCORAFENIB
     Dosage: TAKE 6 CAPSULES (450 MG) EVERY DAY
     Route: 048
     Dates: start: 20230627
  3. MEKTOVI [Suspect]
     Active Substance: BINIMETINIB
     Indication: Metastatic malignant melanoma
     Dosage: UNK
     Dates: start: 20210706
  4. MEKTOVI [Suspect]
     Active Substance: BINIMETINIB
     Dosage: TAKE TWO TABLETS (30 MG) BY MOUTH TWICE DAILY
     Route: 048
  5. ZOMETA [Concomitant]
     Active Substance: ZOLEDRONIC ACID
     Indication: Bone loss
     Dosage: 4 MG, EVERY 6 MONTHS
     Route: 042
     Dates: start: 20210806
  6. ZOMETA [Concomitant]
     Active Substance: ZOLEDRONIC ACID
     Indication: Metastases to bone
     Dosage: UNK
     Dates: start: 202109
  7. ZOMETA [Concomitant]
     Active Substance: ZOLEDRONIC ACID
     Dosage: EVERY 6 MONTHS NOW
     Dates: start: 202309

REACTIONS (3)
  - Gastroenteritis viral [Recovered/Resolved]
  - Hyperkeratosis [Not Recovered/Not Resolved]
  - Palmar-plantar erythrodysaesthesia syndrome [Not Recovered/Not Resolved]

NARRATIVE: CASE EVENT DATE: 20210901
